FAERS Safety Report 17507719 (Version 2)
Quarter: 2020Q1

REPORT INFORMATION
  Report Type: Spontaneous
  Country: IT (occurrence: IT)
  Receive Date: 20200306
  Receipt Date: 20200313
  Transmission Date: 20200409
  Serious: Yes (Other)
  Sender: FDA-Public Use
  Company Number: IT-VELOXIS PHARMACEUTICALS-2020VELIT-000202

PATIENT
  Age: 51 Year
  Sex: Male

DRUGS (6)
  1. SOFOSBUVIR;VELPATASVIR [Interacting]
     Active Substance: SOFOSBUVIR\VELPATASVIR
     Indication: ANTIRETROVIRAL THERAPY
     Route: 065
  2. GLECAPREVIR;PIBRENTASVIR [Suspect]
     Active Substance: GLECAPREVIR\PIBRENTASVIR
     Indication: ANTIRETROVIRAL THERAPY
     Route: 065
  3. ENVARSUS XR [Interacting]
     Active Substance: TACROLIMUS
     Dosage: UNK
  4. METHYLPREDNISOLONE. [Suspect]
     Active Substance: METHYLPREDNISOLONE
     Indication: IMMUNOSUPPRESSANT DRUG THERAPY
     Route: 065
  5. BASILIXIMAB [Suspect]
     Active Substance: BASILIXIMAB
     Indication: IMMUNOSUPPRESSANT DRUG THERAPY
     Dosage: 2 DOSES
     Route: 065
  6. ENVARSUS XR [Suspect]
     Active Substance: TACROLIMUS
     Indication: IMMUNOSUPPRESSANT DRUG THERAPY
     Dosage: UNK
     Route: 065

REACTIONS (5)
  - Pancreatitis acute [Unknown]
  - Acute kidney injury [Unknown]
  - Drug level increased [Recovering/Resolving]
  - Drug interaction [Recovering/Resolving]
  - Hepatitis C [Recovered/Resolved]
